FAERS Safety Report 23788716 (Version 1)
Quarter: 2024Q2

REPORT INFORMATION
  Report Type: Spontaneous
  Country: DE (occurrence: DE)
  Receive Date: 20240426
  Receipt Date: 20240426
  Transmission Date: 20240716
  Serious: Yes (Death, Other)
  Sender: FDA-Public Use
  Company Number: DE-AstraZeneca-2024A083201

PATIENT
  Sex: Male

DRUGS (4)
  1. CARBOPLATIN [Suspect]
     Active Substance: CARBOPLATIN
     Indication: Non-small cell lung cancer
     Dates: start: 202309, end: 202401
  2. TREMELIMUMAB [Suspect]
     Active Substance: TREMELIMUMAB
     Indication: Non-small cell lung cancer
     Dosage: FOA - INJECTION
     Route: 041
     Dates: start: 202309, end: 202401
  3. PACLITAXEL [Suspect]
     Active Substance: PACLITAXEL
     Indication: Non-small cell lung cancer
     Dates: start: 202309, end: 202401
  4. DURVALUMAB [Suspect]
     Active Substance: DURVALUMAB
     Indication: Non-small cell lung cancer
     Dosage: FOA - INFUSION
     Route: 041
     Dates: start: 202309, end: 202401

REACTIONS (2)
  - Metastases to liver [Fatal]
  - Arthralgia [Unknown]

NARRATIVE: CASE EVENT DATE: 20231101
